FAERS Safety Report 7945578-6 (Version None)
Quarter: 2011Q4

REPORT INFORMATION
  Report Type: 
  Country: None (occurrence: None)
  Receive Date: 20111129
  Receipt Date: 20111122
  Transmission Date: 20120403
  Serious: Yes (Hospitalization)
  Sender: FDA-Public Use
  Company Number: US-VERTEX PHARMACEUTICALS INC.-AE-2011-003923

PATIENT
  Sex: Female
  Weight: 73.6 kg

DRUGS (4)
  1. INCIVEK [Suspect]
     Indication: HEPATITIS C
     Route: 048
     Dates: start: 20111005, end: 20111105
  2. RIBAVIRIN [Concomitant]
     Indication: HEPATITIS C
     Route: 048
     Dates: start: 20111005, end: 20111105
  3. NEXIUM [Concomitant]
  4. INTERFERON [Concomitant]
     Indication: HEPATITIS C
     Route: 058
     Dates: start: 20111005, end: 20111104

REACTIONS (5)
  - HYPOTENSION [None]
  - ANAEMIA [None]
  - NEUTROPENIA [None]
  - DEHYDRATION [None]
  - TACHYCARDIA [None]
